FAERS Safety Report 8959657 (Version 1)
Quarter: 2012Q4

REPORT INFORMATION
  Report Type: 
  Country: CO (occurrence: CO)
  Receive Date: 20121212
  Receipt Date: 20121212
  Transmission Date: 20130627
  Serious: Yes (Hospitalization, Other)
  Sender: FDA-Public Use
  Company Number: CO-PFIZER INC-2012311426

PATIENT
  Age: 57 Year
  Sex: Male

DRUGS (4)
  1. NORVAS [Suspect]
     Indication: HYPERTENSION ARTERIAL
     Dosage: 10 mg, 1x/day
     Route: 048
     Dates: start: 2006, end: 2011
  2. ATORVASTATIN [Concomitant]
     Indication: CHOLESTEROL BLOOD INCREASED
     Dosage: 40 mg, UNK
     Route: 048
     Dates: start: 2008
  3. SYNTHROID [Concomitant]
     Indication: THYROID DISORDER
     Dosage: 112 mg, 1x/day
     Route: 048
     Dates: start: 2008
  4. CARDIOASPIRINA [Concomitant]
     Dosage: 100 mg, 1x/day
     Route: 048
     Dates: start: 2009

REACTIONS (2)
  - Myocardial infarction [Unknown]
  - Thrombosis [Unknown]
